FAERS Safety Report 15192178 (Version 1)
Quarter: 2018Q3

REPORT INFORMATION
  Report Type: Spontaneous
  Country: FR (occurrence: FR)
  Receive Date: 20180724
  Receipt Date: 20180724
  Transmission Date: 20181010
  Serious: Yes (Other)
  Sender: FDA-Public Use
  Company Number: FR-MERCK KGAA-2052684

PATIENT
  Age: 69 Year
  Sex: Female
  Weight: 58 kg

DRUGS (1)
  1. NOVOTHYROX [Suspect]
     Active Substance: LEVOTHYROXINE SODIUM
     Indication: THYROIDECTOMY
     Route: 048
     Dates: start: 201704, end: 20171015

REACTIONS (9)
  - Vertigo [Recovering/Resolving]
  - Malaise [Recovered/Resolved]
  - Amnesia [Recovering/Resolving]
  - Hot flush [Recovering/Resolving]
  - Insomnia [Recovering/Resolving]
  - Fatigue [Recovering/Resolving]
  - Aphasia [Recovering/Resolving]
  - Irritability [Recovering/Resolving]
  - Blood thyroid stimulating hormone normal [Recovering/Resolving]

NARRATIVE: CASE EVENT DATE: 201706
